FAERS Safety Report 22275296 (Version 2)
Quarter: 2025Q1

REPORT INFORMATION
  Report Type: Spontaneous
  Country: CA (occurrence: CA)
  Receive Date: 20230502
  Receipt Date: 20250307
  Transmission Date: 20250408
  Serious: Yes (Other)
  Sender: MYLAN
  Company Number: CA-MYLANLABS-2023M1046092

PATIENT
  Age: 83 Year
  Sex: Male

DRUGS (48)
  1. LIPITOR [Suspect]
     Active Substance: ATORVASTATIN CALCIUM
     Indication: Product used for unknown indication
     Dosage: 10 MILLIGRAM, QD (1 EVERY 1 DAYS)
  2. LIPITOR [Suspect]
     Active Substance: ATORVASTATIN CALCIUM
     Dosage: 10 MILLIGRAM, QD (1 EVERY 1 DAYS)
     Route: 065
  3. LIPITOR [Suspect]
     Active Substance: ATORVASTATIN CALCIUM
     Dosage: 10 MILLIGRAM, QD (1 EVERY 1 DAYS)
     Route: 065
  4. LIPITOR [Suspect]
     Active Substance: ATORVASTATIN CALCIUM
     Dosage: 10 MILLIGRAM, QD (1 EVERY 1 DAYS)
  5. LAMOTRIGINE [Suspect]
     Active Substance: LAMOTRIGINE
     Indication: Product used for unknown indication
     Dosage: 1 DOSAGE FORM, QD (1 EVERY 1 DAYS)
  6. LAMOTRIGINE [Suspect]
     Active Substance: LAMOTRIGINE
     Dosage: 1 DOSAGE FORM, QD (1 EVERY 1 DAYS)
     Route: 065
  7. LAMOTRIGINE [Suspect]
     Active Substance: LAMOTRIGINE
     Dosage: 1 DOSAGE FORM, QD (1 EVERY 1 DAYS)
     Route: 065
  8. LAMOTRIGINE [Suspect]
     Active Substance: LAMOTRIGINE
     Dosage: 1 DOSAGE FORM, QD (1 EVERY 1 DAYS)
  9. BACLOFEN [Suspect]
     Active Substance: BACLOFEN
     Indication: Product used for unknown indication
  10. BACLOFEN [Suspect]
     Active Substance: BACLOFEN
     Route: 065
  11. BACLOFEN [Suspect]
     Active Substance: BACLOFEN
     Route: 065
  12. BACLOFEN [Suspect]
     Active Substance: BACLOFEN
  13. CLOBETASOL PROPIONATE [Suspect]
     Active Substance: CLOBETASOL PROPIONATE
     Indication: Product used for unknown indication
  14. CLOBETASOL PROPIONATE [Suspect]
     Active Substance: CLOBETASOL PROPIONATE
     Route: 061
  15. CLOBETASOL PROPIONATE [Suspect]
     Active Substance: CLOBETASOL PROPIONATE
     Route: 061
  16. CLOBETASOL PROPIONATE [Suspect]
     Active Substance: CLOBETASOL PROPIONATE
  17. HYDROCORTISONE [Suspect]
     Active Substance: HYDROCORTISONE
     Indication: Product used for unknown indication
  18. HYDROCORTISONE [Suspect]
     Active Substance: HYDROCORTISONE
     Route: 065
  19. HYDROCORTISONE [Suspect]
     Active Substance: HYDROCORTISONE
     Route: 065
  20. HYDROCORTISONE [Suspect]
     Active Substance: HYDROCORTISONE
  21. MELOXICAM [Suspect]
     Active Substance: MELOXICAM
     Indication: Product used for unknown indication
  22. MELOXICAM [Suspect]
     Active Substance: MELOXICAM
     Route: 065
  23. MELOXICAM [Suspect]
     Active Substance: MELOXICAM
     Route: 065
  24. MELOXICAM [Suspect]
     Active Substance: MELOXICAM
  25. PROLIA [Suspect]
     Active Substance: DENOSUMAB
     Indication: Product used for unknown indication
  26. PROLIA [Suspect]
     Active Substance: DENOSUMAB
     Route: 058
  27. PROLIA [Suspect]
     Active Substance: DENOSUMAB
     Route: 058
  28. PROLIA [Suspect]
     Active Substance: DENOSUMAB
  29. TELMISARTAN [Suspect]
     Active Substance: TELMISARTAN
     Indication: Product used for unknown indication
     Dosage: 40 MILLIGRAM, QD (1 EVERY 1 DAYS)
  30. TELMISARTAN [Suspect]
     Active Substance: TELMISARTAN
     Dosage: 40 MILLIGRAM, QD (1 EVERY 1 DAYS)
     Route: 065
  31. TELMISARTAN [Suspect]
     Active Substance: TELMISARTAN
     Dosage: 40 MILLIGRAM, QD (1 EVERY 1 DAYS)
     Route: 065
  32. TELMISARTAN [Suspect]
     Active Substance: TELMISARTAN
     Dosage: 40 MILLIGRAM, QD (1 EVERY 1 DAYS)
  33. VITAMIN D3 [Suspect]
     Active Substance: CHOLECALCIFEROL
     Indication: Product used for unknown indication
     Dosage: 1000 INTERNATIONAL UNIT, QD (1 EVERY 1 DAYS)
  34. VITAMIN D3 [Suspect]
     Active Substance: CHOLECALCIFEROL
     Dosage: 1000 INTERNATIONAL UNIT, QD (1 EVERY 1 DAYS)
     Route: 065
  35. VITAMIN D3 [Suspect]
     Active Substance: CHOLECALCIFEROL
     Dosage: 1000 INTERNATIONAL UNIT, QD (1 EVERY 1 DAYS)
     Route: 065
  36. VITAMIN D3 [Suspect]
     Active Substance: CHOLECALCIFEROL
     Dosage: 1000 INTERNATIONAL UNIT, QD (1 EVERY 1 DAYS)
  37. ASPIRIN [Suspect]
     Active Substance: ASPIRIN
     Indication: Product used for unknown indication
     Dosage: 81 MILLIGRAM, QD (1 EVERY 1 DAYS)
  38. ASPIRIN [Suspect]
     Active Substance: ASPIRIN
     Dosage: 81 MILLIGRAM, QD (1 EVERY 1 DAYS)
     Route: 065
  39. ASPIRIN [Suspect]
     Active Substance: ASPIRIN
     Dosage: 81 MILLIGRAM, QD (1 EVERY 1 DAYS)
     Route: 065
  40. ASPIRIN [Suspect]
     Active Substance: ASPIRIN
     Dosage: 81 MILLIGRAM, QD (1 EVERY 1 DAYS)
  41. CALCIUM\CHOLECALCIFEROL [Suspect]
     Active Substance: CALCIUM\CHOLECALCIFEROL
     Indication: Product used for unknown indication
  42. CALCIUM\CHOLECALCIFEROL [Suspect]
     Active Substance: CALCIUM\CHOLECALCIFEROL
     Route: 065
  43. CALCIUM\CHOLECALCIFEROL [Suspect]
     Active Substance: CALCIUM\CHOLECALCIFEROL
     Route: 065
  44. CALCIUM\CHOLECALCIFEROL [Suspect]
     Active Substance: CALCIUM\CHOLECALCIFEROL
  45. TYLENOL [Suspect]
     Active Substance: ACETAMINOPHEN
     Indication: Product used for unknown indication
  46. TYLENOL [Suspect]
     Active Substance: ACETAMINOPHEN
     Route: 065
  47. TYLENOL [Suspect]
     Active Substance: ACETAMINOPHEN
     Route: 065
  48. TYLENOL [Suspect]
     Active Substance: ACETAMINOPHEN

REACTIONS (31)
  - Asthenia [Recovered/Resolved]
  - Burning sensation [Recovered/Resolved]
  - Cataract [Recovered/Resolved]
  - Cerebral disorder [Recovered/Resolved]
  - Decreased interest [Recovered/Resolved]
  - Depression [Recovered/Resolved]
  - Dysuria [Recovered/Resolved]
  - Feeling abnormal [Recovered/Resolved]
  - Feeling cold [Recovered/Resolved]
  - Gait disturbance [Recovered/Resolved]
  - Headache [Recovered/Resolved]
  - Hip arthroplasty [Recovered/Resolved]
  - Hypertension [Recovered/Resolved]
  - Hypoacusis [Recovered/Resolved]
  - Knee arthroplasty [Recovered/Resolved]
  - Memory impairment [Recovered/Resolved]
  - Mobility decreased [Recovered/Resolved]
  - Myocardial infarction [Recovered/Resolved]
  - Nerve compression [Recovered/Resolved]
  - Neuropathy peripheral [Recovered/Resolved]
  - Peripheral coldness [Recovered/Resolved]
  - Radiculopathy [Recovered/Resolved]
  - Syncope [Recovered/Resolved]
  - Urinary tract disorder [Recovered/Resolved]
  - Back pain [Recovered/Resolved]
  - Hypoaesthesia [Recovered/Resolved]
  - Dizziness [Recovered/Resolved]
  - Myalgia [Recovered/Resolved]
  - Pain in extremity [Recovered/Resolved]
  - Arthralgia [Recovered/Resolved]
  - Muscle spasms [Recovered/Resolved]
